FAERS Safety Report 5123554-9 (Version None)
Quarter: 2006Q3

REPORT INFORMATION
  Report Type: 
  Country: None (occurrence: None)
  Receive Date: 20060801
  Receipt Date: 20051031
  Transmission Date: 20061208
  Serious: Yes (Other)
  Sender: FDA-Public Use
  Company Number: 2005150688

PATIENT

DRUGS (1)
  1. CAMPTOSAR [Suspect]
     Indication: ILL-DEFINED DISORDER

REACTIONS (1)
  - NEUTROPENIA [None]
